FAERS Safety Report 8229753-1 (Version None)
Quarter: 2012Q1

REPORT INFORMATION
  Report Type: 
  Country: None (occurrence: None)
  Receive Date: 20120322
  Receipt Date: 20120314
  Transmission Date: 20120608
  Serious: Yes (Hospitalization, Other)
  Sender: FDA-Public Use
  Company Number: US-ASTRAZENECA-2012SE18105

PATIENT
  Age: 47 Year
  Sex: Female

DRUGS (6)
  1. PRAVASTATIN [Concomitant]
  2. CRESTOR [Suspect]
     Route: 048
  3. TOPROL-XL [Suspect]
     Route: 048
  4. PLAVIX [Concomitant]
  5. ASPIRIN [Concomitant]
     Route: 048
  6. LISINOPRIL [Suspect]
     Route: 048

REACTIONS (11)
  - LOW DENSITY LIPOPROTEIN INCREASED [None]
  - MYALGIA [None]
  - ANXIETY [None]
  - CORONARY ARTERY DISEASE [None]
  - MYOCARDIAL INFARCTION [None]
  - HYPERTENSION [None]
  - EMOTIONAL DISORDER [None]
  - CEREBROVASCULAR ACCIDENT [None]
  - DEPRESSED MOOD [None]
  - DRUG HYPERSENSITIVITY [None]
  - HIGH DENSITY LIPOPROTEIN DECREASED [None]
